FAERS Safety Report 6684420-0 (Version None)
Quarter: 2010Q2

REPORT INFORMATION
  Report Type: 
  Country: None (occurrence: None)
  Receive Date: 20100416
  Receipt Date: 20100408
  Transmission Date: 20101027
  Serious: Yes (Death, Hospitalization)
  Sender: FDA-Public Use
  Company Number: US-NOVOPROD-293020

PATIENT
  Sex: Female
  Weight: 90.703 kg

DRUGS (2)
  1. NOVOLOG [Suspect]
     Indication: INSULIN-REQUIRING TYPE 2 DIABETES MELLITUS
     Dosage: NOT SUSPECT
     Route: 058
     Dates: start: 20090101
  2. LEVEMIR [Suspect]
     Indication: INSULIN-REQUIRING TYPE 2 DIABETES MELLITUS
     Dosage: NOT SUSPECT
     Route: 058
     Dates: start: 20090101

REACTIONS (2)
  - DISEASE COMPLICATION [None]
  - MYOCARDIAL INFARCTION [None]
